FAERS Safety Report 5253532-0 (Version None)
Quarter: 2007Q1

REPORT INFORMATION
  Report Type: 
  Country: None (occurrence: None)
  Receive Date: 20070301
  Receipt Date: 20070217
  Transmission Date: 20070707
  Serious: Yes (Other)
  Sender: FDA-Public Use
  Company Number: US-PFIZER INC-2006149762

PATIENT
  Sex: Female
  Weight: 51.7 kg

DRUGS (5)
  1. CHANTIX [Suspect]
     Indication: EX-SMOKER
     Route: 048
     Dates: start: 20061101, end: 20061101
  2. LOPERAMIDE HCL [Suspect]
     Indication: DIARRHOEA
  3. DONNATAL [Suspect]
     Indication: DIARRHOEA
  4. CALCIUM [Concomitant]
  5. EVISTA [Concomitant]

REACTIONS (8)
  - CONSTIPATION [None]
  - DIARRHOEA [None]
  - FLATULENCE [None]
  - INFECTION [None]
  - MUSCLE SPASMS [None]
  - PAIN [None]
  - RECTAL DISCHARGE [None]
  - VIRAL INFECTION [None]
